FAERS Safety Report 9362144 (Version 1)
Quarter: 2013Q2

REPORT INFORMATION
  Report Type: Report from Study
  Country: US (occurrence: US)
  Receive Date: 20130621
  Receipt Date: 20130621
  Transmission Date: 20140414
  Serious: Yes (Other)
  Sender: FDA-Public Use
  Company Number: US-US-EMD SERONO, INC.-7219107

PATIENT
  Age: 39 Year
  Sex: Female

DRUGS (2)
  1. REBIF [Suspect]
     Indication: MULTIPLE SCLEROSIS
     Route: 058
     Dates: start: 20121017
  2. ALEVE                              /00256202/ [Concomitant]
     Indication: PREMEDICATION

REACTIONS (5)
  - Central nervous system viral infection [Recovering/Resolving]
  - Central nervous system lesion [Not Recovered/Not Resolved]
  - Tremor [Unknown]
  - White blood cell count decreased [Recovering/Resolving]
  - Injection site erythema [Not Recovered/Not Resolved]
